FAERS Safety Report 16993760 (Version 1)
Quarter: 2019Q4

REPORT INFORMATION
  Report Type: Spontaneous
  Country: CA (occurrence: CA)
  Receive Date: 20191105
  Receipt Date: 20191105
  Transmission Date: 20200122
  Serious: Yes (Hospitalization)
  Sender: FDA-Public Use
  Company Number: CA-ABBVIE-19K-028-2987648-00

PATIENT
  Sex: Female
  Weight: 84 kg

DRUGS (7)
  1. CALCIUM [Concomitant]
     Active Substance: CALCIUM
     Indication: PRODUCT USED FOR UNKNOWN INDICATION
  2. LEVOTHYROXINE SODIUM. [Concomitant]
     Active Substance: LEVOTHYROXINE SODIUM
     Indication: PRODUCT USED FOR UNKNOWN INDICATION
     Dosage: EVERY UNKNOWN
     Route: 048
  3. HUMIRA [Suspect]
     Active Substance: ADALIMUMAB
     Indication: RHEUMATOID ARTHRITIS
     Route: 058
     Dates: start: 2018, end: 201906
  4. SULFASALAZINE. [Concomitant]
     Active Substance: SULFASALAZINE
     Indication: PRODUCT USED FOR UNKNOWN INDICATION
     Route: 048
     Dates: start: 2018, end: 201907
  5. CELEBREX [Concomitant]
     Active Substance: CELECOXIB
     Indication: ARTHRALGIA
     Dosage: ONCE DAILY TO TWICE IN A DAY, AS NEEDED
     Route: 048
  6. NORTRIPTYLINE [Concomitant]
     Active Substance: NORTRIPTYLINE
     Indication: PRODUCT USED FOR UNKNOWN INDICATION
     Dosage: AT BEDTIME
     Route: 048
  7. XELJANZ [Concomitant]
     Active Substance: TOFACITINIB CITRATE
     Indication: RHEUMATOID ARTHRITIS

REACTIONS (20)
  - Pain in extremity [Unknown]
  - Bacteraemia [Unknown]
  - Synovial cyst [Unknown]
  - Influenza like illness [Unknown]
  - Joint swelling [Recovered/Resolved]
  - Peripheral swelling [Unknown]
  - Skin fissures [Unknown]
  - Osteoarthritis [Unknown]
  - Dry mouth [Unknown]
  - Joint range of motion decreased [Unknown]
  - Ocular hyperaemia [Unknown]
  - Infection [Unknown]
  - Rheumatoid arthritis [Unknown]
  - Synovial rupture [Unknown]
  - Pyrexia [Recovered/Resolved]
  - Neck pain [Unknown]
  - Hypersensitivity [Unknown]
  - Dry eye [Unknown]
  - White blood cell count increased [Unknown]
  - Allergic cough [Unknown]

NARRATIVE: CASE EVENT DATE: 2018
